FAERS Safety Report 11997016 (Version 1)
Quarter: 2016Q1

REPORT INFORMATION
  Report Type: Report from Study
  Country: US (occurrence: US)
  Receive Date: 20160203
  Receipt Date: 20160203
  Transmission Date: 20160526
  Serious: Yes (Other)
  Sender: FDA-Public Use
  Company Number: US-ABBVIE-15K-163-1414997-00

PATIENT
  Age: 35 Year
  Sex: Male

DRUGS (2)
  1. HUMIRA [Suspect]
     Active Substance: ADALIMUMAB
     Indication: ANKYLOSING SPONDYLITIS
     Route: 058
     Dates: start: 20150521
  2. HUMIRA [Suspect]
     Active Substance: ADALIMUMAB
     Indication: CROHN^S DISEASE

REACTIONS (10)
  - Tremor [Recovered/Resolved]
  - Malaise [Recovered/Resolved]
  - Depression [Unknown]
  - Anxiety [Unknown]
  - Drug ineffective [Unknown]
  - Frequent bowel movements [Unknown]
  - Anal incontinence [Unknown]
  - Crohn^s disease [Unknown]
  - Erythema [Unknown]
  - Arthritis [Not Recovered/Not Resolved]
